FAERS Safety Report 9984080 (Version 1)
Quarter: 2014Q1

REPORT INFORMATION
  Report Type: Report from Study
  Country: US (occurrence: US)
  Receive Date: 20140307
  Receipt Date: 20140307
  Transmission Date: 20141002
  Serious: No
  Sender: FDA-Public Use
  Company Number: US-ABBVIE-13P-163-1184245-00

PATIENT
  Sex: Female

DRUGS (5)
  1. HUMIRA [Suspect]
     Indication: PSORIASIS
  2. MULTIVITAMIN [Concomitant]
     Indication: PRODUCT USED FOR UNKNOWN INDICATION
  3. MIRALAX [Concomitant]
     Indication: PRODUCT USED FOR UNKNOWN INDICATION
  4. UNKNOWN MEDICATION FOR HYPERCHOLESTEROLEMIA [Concomitant]
     Indication: BLOOD CHOLESTEROL
  5. UNKNOWN CREAMS [Concomitant]
     Indication: PSORIASIS

REACTIONS (2)
  - Injection site pain [Recovered/Resolved]
  - Paraesthesia [Recovered/Resolved]
